FAERS Safety Report 9408516 (Version 1)
Quarter: 2013Q3

REPORT INFORMATION
  Report Type: Spontaneous
  Country: US (occurrence: None)
  Receive Date: 20130716
  Receipt Date: 20130716
  Transmission Date: 20140515
  Serious: Yes (Other)
  Sender: FDA-Public Use
  Company Number: JPI-P-033471

PATIENT
  Age: 73 Year
  Sex: Female
  Weight: 71.67 kg

DRUGS (8)
  1. XYREM [Suspect]
     Indication: CATAPLEXY
     Dosage: (2.25GM, 2 IN 1 D) ORAL
     Route: 048
     Dates: start: 20130604, end: 20130622
  2. IBUPROFEN [Concomitant]
  3. VALSARTAN [Concomitant]
  4. PRAVASTATIN [Concomitant]
  5. ARMODAFINIL [Concomitant]
  6. BABY ASPIRIN [Concomitant]
  7. VITAMIN E [Concomitant]
  8. FISH OIL [Concomitant]

REACTIONS (5)
  - Arthritis [None]
  - Pain in extremity [None]
  - Condition aggravated [None]
  - Local swelling [None]
  - Muscle strain [None]
